FAERS Safety Report 7069921-8 (Version None)
Quarter: 2010Q4

REPORT INFORMATION
  Report Type: 
  Country: None (occurrence: None)
  Receive Date: 20101028
  Receipt Date: 20100719
  Transmission Date: 20110411
  Serious: No
  Sender: FDA-Public Use
  Company Number: US-WYE-H16314510

PATIENT
  Sex: Male

DRUGS (5)
  1. PROTONIX [Suspect]
     Dosage: UNKNOWN
  2. SPIRIVA [Suspect]
  3. CHANTIX [Suspect]
  4. PROAIR HFA [Suspect]
  5. COMBIVENT [Suspect]

REACTIONS (1)
  - DRUG SCREEN FALSE POSITIVE [None]
